FAERS Safety Report 13765007 (Version 1)
Quarter: 2017Q3

REPORT INFORMATION
  Report Type: Spontaneous
  Country: DE (occurrence: DE)
  Receive Date: 20170718
  Receipt Date: 20170718
  Transmission Date: 20171127
  Serious: Yes (Life-Threatening, Hospitalization, Other)
  Sender: FDA-Public Use
  Company Number: DE-MYLANLABS-2017M1041149

PATIENT

DRUGS (4)
  1. METFORMIN [Suspect]
     Active Substance: METFORMIN HYDROCHLORIDE
     Indication: TYPE 2 DIABETES MELLITUS
     Dosage: DAILY DOSE: 2000 MG MILLIGRAM(S) EVERY DAY
     Route: 048
     Dates: start: 20150101
  2. LYRICA [Concomitant]
     Active Substance: PREGABALIN
     Indication: DIABETIC NEUROPATHY
     Dosage: DAILY DOSE: 50 MG MILLIGRAM(S) EVERY DAY
     Route: 048
     Dates: start: 20150101, end: 20170702
  3. GABAPENTIN. [Concomitant]
     Active Substance: GABAPENTIN
     Indication: DIABETIC NEUROPATHY
     Dosage: DAILY DOSE: 600 MG MILLIGRAM(S) EVERY DAY
     Route: 048
     Dates: start: 2015, end: 20170702
  4. AMITRIPTYLIN [Concomitant]
     Active Substance: AMITRIPTYLINE
     Indication: DIABETIC NEUROPATHY
     Dosage: DAILY DOSE: 90 MG MILLIGRAM(S) EVERY DAY
     Route: 048
     Dates: start: 2015, end: 20170602

REACTIONS (2)
  - Acute kidney injury [Not Recovered/Not Resolved]
  - Metabolic acidosis [Not Recovered/Not Resolved]

NARRATIVE: CASE EVENT DATE: 20170702
